FAERS Safety Report 6575894-4 (Version None)
Quarter: 2010Q1

REPORT INFORMATION
  Report Type: 
  Country: None (occurrence: None)
  Receive Date: 20100209
  Receipt Date: 20100203
  Transmission Date: 20100710
  Serious: Yes (Life-Threatening)
  Sender: FDA-Public Use
  Company Number: IT-B.I. PHARMACEUTICALS,INC./RIDGEFIELD-2009-IT-00267IT

PATIENT
  Sex: Female

DRUGS (11)
  1. CATAPRESAN [Suspect]
     Dosage: RT: 150MG/ML
     Route: 042
     Dates: start: 20091129, end: 20091129
  2. ESOMEPRAZOLO SODICO [Concomitant]
  3. FITOMENADIONE [Concomitant]
  4. METRONIDAZOLO [Concomitant]
  5. HUMAN ALBUMINE [Concomitant]
  6. LASIX [Concomitant]
     Dosage: RT: 20MG/ML
     Route: 042
  7. TYGACIL [Concomitant]
     Dosage: RT: 50 MG
  8. TAZOCIN [Concomitant]
  9. CONTRAMAL [Concomitant]
  10. PLASIL [Concomitant]
  11. ESAFOSFINA [Concomitant]

REACTIONS (1)
  - BRADYARRHYTHMIA [None]
